FAERS Safety Report 5942912-3 (Version None)
Quarter: 2008Q4

REPORT INFORMATION
  Report Type: 
  Country: None (occurrence: None)
  Receive Date: 20081106
  Receipt Date: 20081031
  Transmission Date: 20090506
  Serious: Yes (Other)
  Sender: FDA-Public Use
  Company Number: IN-BRISTOL-MYERS SQUIBB COMPANY-14387047

PATIENT

DRUGS (4)
  1. EFAVIRENZ [Suspect]
  2. STAVUDINE [Suspect]
  3. ZIDOVUDINE [Suspect]
  4. NEVIRAPINE [Suspect]

REACTIONS (22)
  - ABDOMINAL PAIN [None]
  - ABNORMAL DREAMS [None]
  - ALLERGY TO ARTHROPOD STING [None]
  - ALOPECIA [None]
  - ANAEMIA [None]
  - ANOREXIA [None]
  - BLOOD LACTIC ACID INCREASED [None]
  - GASTRITIS [None]
  - HEADACHE [None]
  - HYPERLIPIDAEMIA [None]
  - IMMUNE RECONSTITUTION SYNDROME [None]
  - LIPODYSTROPHY ACQUIRED [None]
  - LIVER FUNCTION TEST ABNORMAL [None]
  - MACROCYTOSIS [None]
  - NAIL PIGMENTATION [None]
  - NAUSEA [None]
  - NEUROPATHY PERIPHERAL [None]
  - PRURITUS [None]
  - RASH [None]
  - SLEEP DISORDER [None]
  - URTICARIA [None]
  - VOMITING [None]
